FAERS Safety Report 9979705 (Version 1)
Quarter: 2014Q1

REPORT INFORMATION
  Report Type: Report from Study
  Country: US (occurrence: US)
  Receive Date: 20140306
  Receipt Date: 20140306
  Transmission Date: 20141002
  Serious: No
  Sender: FDA-Public Use
  Company Number: US-ABBVIE-13P-163-1170384-00

PATIENT
  Age: 55 Year
  Sex: Female

DRUGS (15)
  1. HUMIRA [Suspect]
     Indication: CROHN^S DISEASE
     Dates: start: 201308
  2. PRILOSEC [Concomitant]
     Indication: PRODUCT USED FOR UNKNOWN INDICATION
     Dosage: 40 MILLIGRAMS DAILY
  3. IRON COMPOUND [Concomitant]
     Indication: PRODUCT USED FOR UNKNOWN INDICATION
     Dosage: 45 MILLIGRAMS DAILY
  4. CALCIUM [Concomitant]
     Indication: PRODUCT USED FOR UNKNOWN INDICATION
  5. FLAX SEED OIL [Concomitant]
     Indication: PRODUCT USED FOR UNKNOWN INDICATION
  6. CRANBERRY [Concomitant]
     Indication: PRODUCT USED FOR UNKNOWN INDICATION
  7. VITAMIN D3 [Concomitant]
     Indication: PRODUCT USED FOR UNKNOWN INDICATION
     Dosage: 5000 IU DAILY
  8. MENOPAUSE SUPPORT [Concomitant]
     Indication: PRODUCT USED FOR UNKNOWN INDICATION
     Dosage: DAILY
  9. BIOTIN [Concomitant]
     Indication: PRODUCT USED FOR UNKNOWN INDICATION
     Dosage: 5000 MICROGRAMS DAILY
  10. HYDROCHLOROTHIAZIDE [Concomitant]
     Indication: PRODUCT USED FOR UNKNOWN INDICATION
     Dosage: 25 MILLIGRAMS DAILY
  11. SUPER B COMPLEX [Concomitant]
     Indication: PRODUCT USED FOR UNKNOWN INDICATION
     Dosage: DAILY
  12. FISH OIL [Concomitant]
     Indication: PRODUCT USED FOR UNKNOWN INDICATION
     Dosage: TWO DAILY
  13. MOVE FREE ULTRA [Concomitant]
     Indication: PRODUCT USED FOR UNKNOWN INDICATION
     Dosage: DAILY
  14. MAGNESIUM [Concomitant]
     Indication: PRODUCT USED FOR UNKNOWN INDICATION
     Dosage: 400 MILLIGRAMS DAILY
  15. ZYRTEC [Concomitant]
     Indication: PRODUCT USED FOR UNKNOWN INDICATION

REACTIONS (1)
  - Injection site pain [Recovering/Resolving]
